FAERS Safety Report 8407198-9 (Version None)
Quarter: 2012Q2

REPORT INFORMATION
  Report Type: 
  Country: None (occurrence: None)
  Receive Date: 20120604
  Receipt Date: 20120523
  Transmission Date: 20120825
  Serious: Yes (Other)
  Sender: FDA-Public Use
  Company Number: US-ELI_LILLY_AND_COMPANY-US201101003898

PATIENT
  Sex: Female

DRUGS (7)
  1. FORTEO [Suspect]
     Indication: OSTEOPOROSIS
     Dosage: 20 UG, DAILY (1/D)
  2. FORTEO [Suspect]
     Dosage: 20 UG, QD
  3. ATENOLOL [Concomitant]
     Dosage: 25 MG, UNK
  4. ASPIRIN [Concomitant]
     Dosage: 81 MG, UNK
  5. CALCIUM [Concomitant]
     Dosage: 1000 MG, QD
  6. FORTEO [Suspect]
     Dosage: 20 UG, QD
     Dates: end: 20120401
  7. SPIRIVA [Concomitant]

REACTIONS (11)
  - METASTASES TO ABDOMINAL WALL [None]
  - INTESTINAL DILATATION [None]
  - HAEMATOMA [None]
  - CONSTIPATION [None]
  - INJECTION SITE PAIN [None]
  - VOMITING [None]
  - VOLVULUS [None]
  - PAIN [None]
  - NAUSEA [None]
  - COLON CANCER [None]
  - MASS [None]
